FAERS Safety Report 13349599 (Version 1)
Quarter: 2017Q1

REPORT INFORMATION
  Report Type: Spontaneous
  Country: DE (occurrence: DE)
  Receive Date: 20170320
  Receipt Date: 20170320
  Transmission Date: 20170428
  Serious: Yes (Other)
  Sender: FDA-Public Use
  Company Number: DE-AUROBINDO-AUR-APL-2017-31082

PATIENT

DRUGS (1)
  1. AMIODARONE [Suspect]
     Active Substance: AMIODARONE
     Indication: ARRHYTHMIA
     Dosage: 200 MG, DAILY
     Route: 065

REACTIONS (4)
  - Vestibular disorder [Recovering/Resolving]
  - Gait disturbance [Recovering/Resolving]
  - Vertigo [Recovering/Resolving]
  - Polyneuropathy [Recovering/Resolving]
